FAERS Safety Report 7162686-0 (Version None)
Quarter: 2010Q4

REPORT INFORMATION
  Report Type: 
  Country: None (occurrence: None)
  Receive Date: 20101215
  Receipt Date: 20091209
  Transmission Date: 20110411
  Serious: Yes (Death)
  Sender: FDA-Public Use
  Company Number: KR-PFIZER INC-2009250324

PATIENT
  Age: 65 Year

DRUGS (4)
  1. VORICONAZOLE [Suspect]
     Indication: ASPERGILLOSIS
     Dosage: 400 MG, 2X/DAY
     Route: 042
     Dates: start: 20070702, end: 20070702
  2. VORICONAZOLE [Suspect]
     Dosage: 200 MG, 2X/DAY
     Route: 042
     Dates: start: 20070703, end: 20070706
  3. CIPROFLOXACIN [Concomitant]
     Route: 042
     Dates: start: 20070628, end: 20070706
  4. ALL OTHER THERAPEUTIC PRODUCTS [Concomitant]
     Route: 048
     Dates: start: 20070617, end: 20070704

REACTIONS (1)
  - PNEUMONIA [None]
